FAERS Safety Report 12552855 (Version 1)
Quarter: 2016Q3

REPORT INFORMATION
  Report Type: Spontaneous
  Country: NL (occurrence: NL)
  Receive Date: 20160713
  Receipt Date: 20160713
  Transmission Date: 20161109
  Serious: Yes (Hospitalization)
  Sender: FDA-Public Use
  Company Number: PHHY2016NL092889

PATIENT
  Age: 2 Year
  Sex: Male

DRUGS (1)
  1. SALBUTAMOL SANDOZ [Suspect]
     Active Substance: ALBUTEROL
     Indication: DYSPNOEA
     Dosage: EXTRA INFO: 2 PUFF A 20 MIN DRIEMAAL, DAARNA 2 PUFF A 1 UUR 8 MAAL
     Route: 055
     Dates: start: 20160628, end: 20160628

REACTIONS (3)
  - Product quality issue [Recovered/Resolved]
  - Therapeutic response decreased [Recovered/Resolved]
  - Dyspnoea [Recovered/Resolved]

NARRATIVE: CASE EVENT DATE: 20160628
